FAERS Safety Report 9666563 (Version 2)
Quarter: 2014Q1

REPORT INFORMATION
  Report Type: Spontaneous
  Country: GB (occurrence: GB)
  Receive Date: 20131104
  Receipt Date: 20140115
  Transmission Date: 20141002
  Serious: Yes (Hospitalization)
  Sender: FDA-Public Use
  Company Number: PHFR2013GB006190

PATIENT
  Sex: Male

DRUGS (2)
  1. TRILEPTAL [Suspect]
     Indication: EPILEPSY
     Dosage: 300 MG, QID
  2. ANTIEPILEPTICS [Concomitant]

REACTIONS (3)
  - Renal disorder [Recovered/Resolved]
  - Malaise [Recovered/Resolved]
  - Convulsion [Recovered/Resolved]
